FAERS Safety Report 6919105-6 (Version None)
Quarter: 2010Q3

REPORT INFORMATION
  Report Type: 
  Country: None (occurrence: None)
  Receive Date: 20100811
  Receipt Date: 20100805
  Transmission Date: 20110219
  Serious: Yes (Hospitalization)
  Sender: FDA-Public Use
  Company Number: NL-MPIJNJ-2010-01668

PATIENT

DRUGS (1)
  1. VELCADE [Suspect]
     Indication: MULTIPLE MYELOMA
     Dosage: 2.5 MG, UNK
     Route: 042
     Dates: start: 20091013, end: 20091120

REACTIONS (3)
  - GASTROENTERITIS RADIATION [None]
  - RECTAL HAEMORRHAGE [None]
  - THROMBOCYTOPENIA [None]
